FAERS Safety Report 20370735 (Version 1)
Quarter: 2022Q1

REPORT INFORMATION
  Report Type: Spontaneous
  Country: US (occurrence: US)
  Receive Date: 20220124
  Receipt Date: 20220124
  Transmission Date: 20220423
  Serious: No
  Sender: FDA-Public Use
  Company Number: US-GSKCCFUS-Case-01271767_AE-74316

PATIENT
  Age: 75 Year
  Sex: Female

DRUGS (1)
  1. SOTROVIMAB [Suspect]
     Active Substance: SOTROVIMAB
     Indication: Coronavirus infection
     Dosage: 500 MG
     Route: 042
     Dates: start: 20220111

REACTIONS (7)
  - Throat tightness [Unknown]
  - Chest discomfort [Unknown]
  - Blood pressure increased [Recovered/Resolved]
  - Feeling abnormal [Unknown]
  - Throat irritation [Unknown]
  - Condition aggravated [Unknown]
  - Ulcer [Unknown]

NARRATIVE: CASE EVENT DATE: 20220101
